FAERS Safety Report 18733851 (Version 1)
Quarter: 2021Q1

REPORT INFORMATION
  Report Type: Spontaneous
  Country: US (occurrence: US)
  Receive Date: 20210113
  Receipt Date: 20210113
  Transmission Date: 20210419
  Serious: Yes (Other)
  Sender: FDA-Public Use
  Company Number: US-AUROBINDO-AUR-APL-2021-001203

PATIENT
  Age: 48 Year
  Sex: Female

DRUGS (3)
  1. PENICILLIN G [Concomitant]
     Active Substance: PENICILLIN G
     Indication: SKIN TEST
     Dosage: UNK
     Route: 023
  2. AMOXICILLIN. [Suspect]
     Active Substance: AMOXICILLIN
     Indication: ALLERGY TEST
     Dosage: 500 MILLIGRAM
     Route: 048
  3. BENZYLPENICILLOYL POLYLYSINE [Concomitant]
     Active Substance: BENZYLPENICILLOYL POLYLYSINE
     Indication: SKIN TEST
     Dosage: UNK
     Route: 023

REACTIONS (5)
  - Throat tightness [Recovered/Resolved]
  - Dyspnoea [Recovered/Resolved]
  - Laryngeal obstruction [Recovered/Resolved]
  - Wheezing [Recovered/Resolved]
  - Cough [Recovered/Resolved]
